FAERS Safety Report 13006637 (Version 1)
Quarter: 2016Q4

REPORT INFORMATION
  Report Type: Spontaneous
  Country: JP (occurrence: JP)
  Receive Date: 20161207
  Receipt Date: 20161207
  Transmission Date: 20170207
  Serious: Yes (Death, Hospitalization)
  Sender: FDA-Public Use
  Company Number: JP-ELI_LILLY_AND_COMPANY-JP201611010848

PATIENT
  Age: 67 Year
  Sex: Male

DRUGS (5)
  1. MIYA-BM [Concomitant]
     Active Substance: CLOSTRIDIUM BUTYRICUM SPORES STRAIN M-55
     Dosage: 1 G, TID
     Route: 048
  2. CYRAMZA [Suspect]
     Active Substance: RAMUCIRUMAB
     Indication: GASTRIC CANCER STAGE IV
     Dosage: 360 MG, OTHER
     Route: 042
     Dates: start: 20160308
  3. PACLITAXEL. [Concomitant]
     Active Substance: PACLITAXEL
     Indication: GASTRIC CANCER STAGE IV
     Dosage: 90 MG, OTHER
     Route: 042
     Dates: start: 20160308
  4. MUCOSTA [Concomitant]
     Active Substance: REBAMIPIDE
     Dosage: 100 MG, TID
     Route: 048
  5. CELECOX [Concomitant]
     Active Substance: CELECOXIB
     Dosage: 100 MG, BID
     Route: 048

REACTIONS (5)
  - Liver abscess [Unknown]
  - Malignant neoplasm progression [Fatal]
  - Neutrophil count decreased [Unknown]
  - Enteritis infectious [Unknown]
  - Klebsiella sepsis [Unknown]

NARRATIVE: CASE EVENT DATE: 20160430
